FAERS Safety Report 5218201-1 (Version None)
Quarter: 2007Q1

REPORT INFORMATION
  Report Type: 
  Country: None (occurrence: None)
  Receive Date: 20061130
  Receipt Date: 20060530
  Transmission Date: 20070707
  Serious: Yes (Hospitalization)
  Sender: FDA-Public Use
  Company Number: US200603000258

PATIENT
  Age: 42 Year
  Sex: Male
  Weight: 72.6 kg

DRUGS (1)
  1. ZYPREXA [Suspect]
     Indication: SCHIZOPHRENIA
     Dosage: 10 MG, ORAL
     Route: 048
     Dates: start: 20000301, end: 20040601

REACTIONS (2)
  - DIABETES MELLITUS [None]
  - WEIGHT INCREASED [None]
